FAERS Safety Report 16398749 (Version 1)
Quarter: 2019Q3

REPORT INFORMATION
  Report Type: Spontaneous
  Country: US (occurrence: US)
  Receive Date: 20190605
  Receipt Date: 20190605
  Transmission Date: 20191004
  Serious: Yes (Other)
  Sender: FDA-Public Use
  Company Number: None

PATIENT
  Age: 84 Year
  Sex: Male
  Weight: 90.45 kg

DRUGS (16)
  1. LACTAID [Concomitant]
     Active Substance: LACTASE
  2. VERAPAMIL HCL [Concomitant]
     Active Substance: VERAPAMIL HYDROCHLORIDE
  3. ALLOPURINOL. [Concomitant]
     Active Substance: ALLOPURINOL
  4. COZAAR [Concomitant]
     Active Substance: LOSARTAN POTASSIUM
  5. COUMADIN [Concomitant]
     Active Substance: WARFARIN SODIUM
  6. CALCITRIOL. [Concomitant]
     Active Substance: CALCITRIOL
  7. EFUDEX [Concomitant]
     Active Substance: FLUOROURACIL
  8. POTASSIUM CHLORIDE ER [Concomitant]
     Active Substance: POTASSIUM CHLORIDE
  9. TUMS CHEWY BITES [Concomitant]
     Active Substance: CALCIUM CARBONATE
  10. VITAMIN D (CHOLECALCIFEROL) [Concomitant]
     Active Substance: CHOLECALCIFEROL
  11. NEXIUM 24HR CLEAR MINIS [Concomitant]
  12. HYDROCORTISONE. [Concomitant]
     Active Substance: HYDROCORTISONE
  13. METRONIDAZOLE. [Concomitant]
     Active Substance: METRONIDAZOLE
  14. LOSARTAN POTASSIUM. [Concomitant]
     Active Substance: LOSARTAN POTASSIUM
  15. BICALUTAMIDE. [Suspect]
     Active Substance: BICALUTAMIDE
     Indication: PROSTATE CANCER
     Route: 048
     Dates: start: 20190513
  16. HYDRALAZINE HCL [Concomitant]
     Active Substance: HYDRALAZINE HYDROCHLORIDE

REACTIONS (3)
  - Peripheral swelling [None]
  - Dyspnoea [None]
  - Blood pressure fluctuation [None]
